FAERS Safety Report 5453785-X (Version None)
Quarter: 2007Q3

REPORT INFORMATION
  Report Type: 
  Country: None (occurrence: None)
  Receive Date: 20070917
  Receipt Date: 20070906
  Transmission Date: 20080115
  Serious: Yes (Hospitalization, Other)
  Sender: FDA-Public Use
  Company Number: US-MERCK-0706USA04816

PATIENT
  Age: 73 Year
  Sex: Female
  Weight: 62 kg

DRUGS (4)
  1. FOSAMAX [Suspect]
     Indication: OSTEOPOROSIS
     Route: 048
     Dates: start: 19971121, end: 19980501
  2. FOSAMAX [Suspect]
     Route: 048
     Dates: end: 20040520
  3. [THERAPY UNSPECIFIED] [Concomitant]
     Route: 065
     Dates: start: 19930101
  4. IBUPROFEN [Concomitant]
     Route: 065

REACTIONS (17)
  - ABDOMINAL DISTENSION [None]
  - ABDOMINAL PAIN [None]
  - ACTINIC KERATOSIS [None]
  - ACUTE SINUSITIS [None]
  - ANXIETY [None]
  - ARTHROPATHY [None]
  - COUGH [None]
  - DEPRESSION [None]
  - DIARRHOEA [None]
  - DYSPEPSIA [None]
  - EYE INFECTION [None]
  - GASTROINTESTINAL DISORDER [None]
  - HOT FLUSH [None]
  - HYPOAESTHESIA ORAL [None]
  - OCULAR HYPERAEMIA [None]
  - OSTEONECROSIS [None]
  - PALPITATIONS [None]
